FAERS Safety Report 25816999 (Version 1)
Quarter: 2025Q3

REPORT INFORMATION
  Report Type: Spontaneous
  Country: US (occurrence: US)
  Receive Date: 20250918
  Receipt Date: 20250918
  Transmission Date: 20251020
  Serious: No
  Sender: MACLEODS
  Company Number: US-MACLEODS PHARMA-MAC2025055042

PATIENT

DRUGS (4)
  1. SILDENAFIL [Suspect]
     Active Substance: SILDENAFIL
     Indication: Sexual activity increased
     Route: 065
     Dates: start: 20250826
  2. SILDENAFIL [Suspect]
     Active Substance: SILDENAFIL
     Dosage: TOOK ONE TABLET BEFORE, THE NEXT DAY HE TOOK TWO TABLETS
     Route: 065
     Dates: start: 20250827
  3. SILDENAFIL [Suspect]
     Active Substance: SILDENAFIL
     Route: 065
     Dates: start: 20250815
  4. SILDENAFIL [Suspect]
     Active Substance: SILDENAFIL
     Route: 065
     Dates: start: 20250818

REACTIONS (1)
  - Drug ineffective [Unknown]

NARRATIVE: CASE EVENT DATE: 20250826
